FAERS Safety Report 16530978 (Version 1)
Quarter: 2019Q3

REPORT INFORMATION
  Report Type: Spontaneous
  Country: US (occurrence: US)
  Receive Date: 20190523
  Receipt Date: 20190523
  Transmission Date: 20191004
  Serious: No
  Sender: FDA-Public Use
  Company Number: None

PATIENT
  Age: 46 Year
  Sex: Female

DRUGS (1)
  1. AFINITOR [Suspect]
     Active Substance: EVEROLIMUS
     Route: 048
     Dates: start: 20190124

REACTIONS (7)
  - Back pain [None]
  - Oral discomfort [None]
  - Tongue discomfort [None]
  - Rash [None]
  - Rash papular [None]
  - Pruritus [None]
  - Rash pruritic [None]

NARRATIVE: CASE EVENT DATE: 20190523
